FAERS Safety Report 8261665-X (Version None)
Quarter: 2012Q2

REPORT INFORMATION
  Report Type: 
  Country: None (occurrence: None)
  Receive Date: 20120405
  Receipt Date: 20120405
  Transmission Date: 20120825
  Serious: No
  Sender: FDA-Public Use
  Company Number: None

PATIENT
  Age: 31 Year
  Sex: Male
  Weight: 86.636 kg

DRUGS (1)
  1. PROPECIA [Suspect]
     Indication: ALOPECIA
     Dosage: 1.0 MG
     Route: 048
     Dates: start: 20081115, end: 20090113

REACTIONS (17)
  - FAT TISSUE INCREASED [None]
  - FLUID RETENTION [None]
  - DEPRESSION [None]
  - ERECTILE DYSFUNCTION [None]
  - GENITAL HYPOAESTHESIA [None]
  - DRY EYE [None]
  - PENILE SIZE REDUCED [None]
  - INSOMNIA [None]
  - THIRST DECREASED [None]
  - PANIC REACTION [None]
  - SKIN DISORDER [None]
  - ALOPECIA [None]
  - TESTICULAR ATROPHY [None]
  - CRYING [None]
  - ANXIETY [None]
  - DRY SKIN [None]
  - FLAT AFFECT [None]
